FAERS Safety Report 18579778 (Version 5)
Quarter: 2021Q1

REPORT INFORMATION
  Report Type: Spontaneous
  Country: US (occurrence: US)
  Receive Date: 20201204
  Receipt Date: 20210331
  Transmission Date: 20210419
  Serious: Yes (Death, Other)
  Sender: FDA-Public Use
  Company Number: US-PFIZER INC-2020479632

PATIENT
  Age: 80 Year
  Sex: Female

DRUGS (2)
  1. RETACRIT [Suspect]
     Active Substance: EPOETIN ALFA-EPBX
     Dosage: 1 ML, WEEKLY (10,000 UNITS/1ML, 1ML ONCE WEEKLY OR AS DIRECTED)
     Route: 058
  2. RETACRIT [Suspect]
     Active Substance: EPOETIN ALFA-EPBX
     Dosage: 4000 IU, WEEKLY

REACTIONS (3)
  - Confusional state [Unknown]
  - Death [Fatal]
  - Cerebrovascular accident [Unknown]
